FAERS Safety Report 8182824-0 (Version None)
Quarter: 2012Q1

REPORT INFORMATION
  Report Type: 
  Country: None (occurrence: None)
  Receive Date: 20120305
  Receipt Date: 20120222
  Transmission Date: 20120608
  Serious: Yes (Hospitalization)
  Sender: FDA-Public Use
  Company Number: US-BAYER-2011-080201

PATIENT
  Age: 26 Year
  Sex: Female
  Weight: 104 kg

DRUGS (5)
  1. DROSPIRENONE AND ETHINYL ESTRADIOL [Suspect]
     Dosage: UNK
     Route: 048
     Dates: start: 19980101
  2. MAXALT [Concomitant]
     Dosage: 10 MG, UNK
     Route: 048
     Dates: start: 20020215, end: 20100711
  3. YAZ [Suspect]
     Dosage: UNK
     Route: 048
     Dates: start: 19980101
  4. DROSPIRENONE AND ETHINYL ESTRADIOL [Suspect]
     Dosage: UNK
     Route: 048
     Dates: start: 19980101
  5. YASMIN [Suspect]
     Dosage: UNK
     Route: 048
     Dates: start: 19980101

REACTIONS (3)
  - GALLBLADDER INJURY [None]
  - FEAR [None]
  - PAIN [None]
